FAERS Safety Report 7596963-6 (Version None)
Quarter: 2011Q3

REPORT INFORMATION
  Report Type: 
  Country: None (occurrence: None)
  Receive Date: 20110708
  Receipt Date: 20110630
  Transmission Date: 20111222
  Serious: Yes (Death)
  Sender: FDA-Public Use
  Company Number: TR-US-EMD SERONO, INC.-7068125

PATIENT
  Sex: Male
  Weight: 60 kg

DRUGS (3)
  1. REBIF [Suspect]
     Indication: MULTIPLE SCLEROSIS
     Route: 058
     Dates: start: 20110201
  2. PAROL [Concomitant]
     Indication: PAIN
     Route: 048
     Dates: start: 20110201
  3. PAROL [Concomitant]
     Indication: PYREXIA

REACTIONS (1)
  - RESPIRATORY ARREST [None]
